FAERS Safety Report 25163636 (Version 1)
Quarter: 2025Q2

REPORT INFORMATION
  Report Type: Spontaneous
  Country: NL (occurrence: NL)
  Receive Date: 20250405
  Receipt Date: 20250405
  Transmission Date: 20250717
  Serious: Yes (Life-Threatening, Hospitalization)
  Sender: ACCORD
  Company Number: None

PATIENT
  Age: 51 Year
  Sex: Female
  Weight: 87.6 kg

DRUGS (1)
  1. CAPECITABINE [Suspect]
     Active Substance: CAPECITABINE
     Indication: Breast cancer
     Dosage: TABLET FO 500 MG?2 X PER DAY 4 PIECES
     Dates: start: 20250106

REACTIONS (1)
  - Cerebral infarction [Recovered/Resolved]
